FAERS Safety Report 10499511 (Version 1)
Quarter: 2014Q4

REPORT INFORMATION
  Report Type: Spontaneous
  Country: US (occurrence: US)
  Receive Date: 20141006
  Receipt Date: 20141006
  Transmission Date: 20150528
  Serious: No
  Sender: FDA-Public Use
  Company Number: US-AMGEN INC.-USASP2014035556

PATIENT
  Age: 77 Year
  Sex: Female

DRUGS (4)
  1. VITAMIN D3 [Concomitant]
     Active Substance: CHOLECALCIFEROL
  2. PROLIA [Suspect]
     Active Substance: DENOSUMAB
     Indication: OSTEOPOROSIS POSTMENOPAUSAL
     Route: 065
  3. CALCIUM [Concomitant]
     Active Substance: CALCIUM
  4. OMEGA 3                            /01333901/ [Concomitant]

REACTIONS (5)
  - Salivary hypersecretion [Not Recovered/Not Resolved]
  - Seasonal allergy [Unknown]
  - Back pain [Unknown]
  - Arthritis [Unknown]
  - Arthralgia [Unknown]
